FAERS Safety Report 7727139-7 (Version None)
Quarter: 2011Q3

REPORT INFORMATION
  Report Type: 
  Country: None (occurrence: None)
  Receive Date: 20110902
  Receipt Date: 20110824
  Transmission Date: 20111222
  Serious: Yes (Other)
  Sender: FDA-Public Use
  Company Number: CH-SANOFI-AVENTIS-2011SA054871

PATIENT
  Age: 62 Year
  Sex: Male
  Weight: 85 kg

DRUGS (9)
  1. MOTILIUM [Concomitant]
     Route: 048
  2. ACETAMINOPHEN [Concomitant]
     Route: 048
  3. ARAVA [Suspect]
     Route: 048
     Dates: start: 20030601
  4. CALCIUM/VITAMIN D [Concomitant]
  5. SPIROCORT [Concomitant]
     Route: 048
  6. AMLODIPINE [Concomitant]
     Route: 048
     Dates: start: 20091101
  7. ETANERCEPT [Suspect]
     Route: 058
     Dates: start: 20071101
  8. DURAGESIC-100 [Concomitant]
     Dosage: 2 PER 2 DAY(S)
     Route: 062
     Dates: start: 20020101
  9. LISINOPRIL [Concomitant]
     Route: 048
     Dates: start: 20050101

REACTIONS (4)
  - LYMPHOMA [None]
  - MEGAKARYOCYTES ABNORMAL [None]
  - BONE MARROW FAILURE [None]
  - NORMOCHROMIC NORMOCYTIC ANAEMIA [None]
